FAERS Safety Report 7103298-4 (Version None)
Quarter: 2010Q4

REPORT INFORMATION
  Report Type: 
  Country: None (occurrence: None)
  Receive Date: 20101115
  Receipt Date: 20101105
  Transmission Date: 20110411
  Serious: Yes (Other)
  Sender: FDA-Public Use
  Company Number: US-MYLANLABS-2010S1020592

PATIENT
  Age: 16 Year
  Sex: Male

DRUGS (1)
  1. AMNESTEEM [Suspect]
     Route: 048

REACTIONS (3)
  - ABDOMINAL PAIN UPPER [None]
  - APPENDICECTOMY [None]
  - GASTROINTESTINAL OBSTRUCTION [None]
